FAERS Safety Report 5662472-4 (Version None)
Quarter: 2008Q1

REPORT INFORMATION
  Report Type: 
  Country: None (occurrence: None)
  Receive Date: 20080213
  Receipt Date: 20080114
  Transmission Date: 20080703
  Serious: Yes (Hospitalization)
  Sender: FDA-Public Use
  Company Number: PHEH2007US15954

PATIENT
  Age: 76 Year
  Sex: Female
  Weight: 70.3 kg

DRUGS (7)
  1. RECLAST [Suspect]
     Indication: OSTEOPOROSIS
     Dosage: 5 MG, ONCE/SINGLE, INTRAVENOUS
     Route: 042
     Dates: start: 20071116
  2. ATORVASTATIN CALCIUM [Concomitant]
  3. ACIPHEX [Concomitant]
  4. IBUPROFEN [Concomitant]
  5. NAPROXEN [Concomitant]
  6. AVANDIA [Concomitant]
  7. LASIX [Concomitant]

REACTIONS (4)
  - BLOOD CREATININE INCREASED [None]
  - NAUSEA [None]
  - PAIN [None]
  - VOMITING [None]
